FAERS Safety Report 8768993 (Version 1)
Quarter: 2012Q4

REPORT INFORMATION
  Report Type: 
  Country: US (occurrence: US)
  Receive Date: 20120904
  Receipt Date: 20120904
  Transmission Date: 20130627
  Serious: No
  Sender: FDA-Public Use
  Company Number: US-009507513-1208USA003178

PATIENT

DRUGS (3)
  1. VICTRELIS [Suspect]
     Indication: HEPATITIS C
     Dosage: UNK mg, UNK
     Route: 048
     Dates: start: 20120622
  2. PEGASYS [Suspect]
  3. RIBASPHERE [Suspect]

REACTIONS (1)
  - Anaemia [Unknown]
